FAERS Safety Report 13001613 (Version 1)
Quarter: 2016Q4

REPORT INFORMATION
  Report Type: Spontaneous
  Country: US (occurrence: None)
  Receive Date: 20161205
  Receipt Date: 20161205
  Transmission Date: 20170207
  Serious: Yes (Other)
  Sender: FDA-Public Use
  Company Number: 16-086

PATIENT
  Age: 50 Year
  Sex: Female
  Weight: 72.58 kg

DRUGS (3)
  1. MUCUS AND COUGH RELIEF [Suspect]
     Active Substance: DEXTROMETHORPHAN HYDROBROMIDE\GUAIFENESIN
     Indication: ANTITUSSIVE THERAPY
     Dosage: 400MG/20MG - PO
     Route: 048
     Dates: start: 20161114
  2. MUCOSA DM [Suspect]
     Active Substance: DEXTROMETHORPHAN HYDROBROMIDE\GUAIFENESIN
     Dosage: NONE
  3. CARBATROL [Concomitant]
     Active Substance: CARBAMAZEPINE

REACTIONS (3)
  - Lip swelling [None]
  - Hypersensitivity [None]
  - Swelling face [None]

NARRATIVE: CASE EVENT DATE: 20161115
